FAERS Safety Report 8318523-1 (Version None)
Quarter: 2012Q2

REPORT INFORMATION
  Report Type: 
  Country: None (occurrence: None)
  Receive Date: 20120427
  Receipt Date: 20120416
  Transmission Date: 20120825
  Serious: Yes (Hospitalization)
  Sender: FDA-Public Use
  Company Number: FR-GLAXOSMITHKLINE-B0795848A

PATIENT
  Sex: Female

DRUGS (18)
  1. ASPIRIN [Suspect]
     Indication: PRODUCT USED FOR UNKNOWN INDICATION
     Route: 048
  2. OROCAL D3 [Concomitant]
     Route: 065
  3. SPIRIVA [Concomitant]
     Route: 065
  4. SYMBICORT [Concomitant]
     Route: 065
  5. LEVOTHYROXINE SODIUM [Concomitant]
     Route: 065
  6. GAVISCON [Concomitant]
     Route: 065
  7. OMEPRAZOLE [Concomitant]
     Route: 065
  8. VITAMIN D [Concomitant]
     Route: 065
  9. TRAMADOL HCL [Concomitant]
     Route: 065
  10. SINGULAIR [Concomitant]
     Route: 065
  11. DOMPERIDONE [Concomitant]
     Route: 065
  12. CHONDROSULF [Concomitant]
     Route: 065
  13. CLONAZEPAM [Concomitant]
     Route: 065
  14. ARIXTRA [Suspect]
     Indication: THROMBOSIS PROPHYLAXIS
     Dosage: 2.5MG PER DAY
     Route: 058
     Dates: start: 20120220, end: 20120306
  15. PREDNISONE TAB [Concomitant]
     Indication: TEMPORAL ARTERITIS
     Dosage: 6MG PER DAY
     Route: 048
  16. ACTONEL [Concomitant]
     Route: 065
  17. GLUCOSAMINE [Concomitant]
     Route: 065
  18. ZOLPIDEM [Concomitant]
     Route: 065

REACTIONS (2)
  - ABDOMINAL WALL HAEMATOMA [None]
  - DRUG INTERACTION [None]
